FAERS Safety Report 9375028 (Version 1)
Quarter: 2013Q2

REPORT INFORMATION
  Report Type: Spontaneous
  Country: HR (occurrence: HR)
  Receive Date: 20130628
  Receipt Date: 20130628
  Transmission Date: 20140414
  Serious: Yes (Other)
  Sender: FDA-Public Use
  Company Number: HR-009507513-1306HRV010824

PATIENT
  Age: 84 Year
  Sex: Female
  Weight: 71 kg

DRUGS (4)
  1. PRINZIDE 20 MG /12.5 MG TABLETE [Suspect]
     Indication: HYPERTENSIVE HEART DISEASE
     Dosage: 1 DF, QD, 1PER 1 DAY(S) (12.5 MG/ 20 MG)
     Dates: start: 201201, end: 201304
  2. PANTOPRAZOLE SODIUM [Suspect]
     Indication: GASTROOESOPHAGEAL REFLUX DISEASE
     Dosage: 20 MG, QD, 1PER 1 DAY(S)
     Dates: start: 201209, end: 201304
  3. AMLOPIN (AMLODIPINE BESYLATE) [Concomitant]
     Indication: HYPERTENSIVE HEART DISEASE
     Dosage: 5 MG, QD, 1PER1 DAY(S)
     Route: 048
     Dates: start: 2003
  4. HELEX [Concomitant]
     Indication: NEUROSIS
     Dosage: 0.5 MG, QD, 1PER 1 DAY(S)
     Dates: start: 2003

REACTIONS (4)
  - Choking [Recovered/Resolved]
  - Oropharyngeal pain [Recovered/Resolved]
  - Salivary hypersecretion [Recovered/Resolved]
  - Rhinorrhoea [Recovered/Resolved]
